FAERS Safety Report 9858866 (Version 1)
Quarter: 2014Q1

REPORT INFORMATION
  Report Type: Spontaneous
  Country: US (occurrence: None)
  Receive Date: 20140130
  Receipt Date: 20140130
  Transmission Date: 20141002
  Serious: Yes (Other)
  Sender: FDA-Public Use
  Company Number: None

PATIENT
  Age: 71 Year
  Sex: 0
  Weight: 79.38 kg

DRUGS (1)
  1. METOPROLOL TARTATE [Suspect]
     Indication: HYPERTENSION
     Route: 048

REACTIONS (5)
  - Amnesia [None]
  - Hypoglycaemia [None]
  - Impaired driving ability [None]
  - Gait disturbance [None]
  - Exercise tolerance decreased [None]
